FAERS Safety Report 16151210 (Version 2)
Quarter: 2019Q3

REPORT INFORMATION
  Report Type: Spontaneous
  Country: IN (occurrence: IN)
  Receive Date: 20190402
  Receipt Date: 20190718
  Transmission Date: 20191004
  Serious: Yes (Other)
  Sender: FDA-Public Use
  Company Number: IN-SUN PHARMACEUTICAL INDUSTRIES LTD-2019R1-203552

PATIENT
  Age: 7 Year
  Sex: Male
  Weight: 23.4 kg

DRUGS (4)
  1. PARACETAMOL [Suspect]
     Active Substance: ACETAMINOPHEN
     Indication: PAIN
     Dosage: 0.5 DOSAGE FORM, PRN (650 MG HALF TABLET AS AND WHEN REQUIRED)
     Route: 065
  2. PARACETAMOL [Suspect]
     Active Substance: ACETAMINOPHEN
     Dosage: INCREASED TO MORE THAN 2000MG,DAILY
     Route: 065
  3. PARACETAMOL [Suspect]
     Active Substance: ACETAMINOPHEN
     Dosage: INCREASED TO 650-1300MG,DAILY
     Route: 065
  4. PARACETAMOL [Suspect]
     Active Substance: ACETAMINOPHEN
     Dosage: 325 MILLIGRAM, DAILY
     Route: 065

REACTIONS (2)
  - Drug dependence [Unknown]
  - Drug abuse [Unknown]
